FAERS Safety Report 23339067 (Version 3)
Quarter: 2024Q1

REPORT INFORMATION
  Report Type: Spontaneous
  Country: CN (occurrence: CN)
  Receive Date: 20231226
  Receipt Date: 20240105
  Transmission Date: 20240410
  Serious: Yes (Life-Threatening, Hospitalization, Other)
  Sender: FDA-Public Use
  Company Number: CN-BAYER-2023A180698

PATIENT
  Age: 37 Year
  Sex: Female

DRUGS (1)
  1. DIANE (CYPROTERONE ACETATE\ETHINYL ESTRADIOL) [Suspect]
     Active Substance: CYPROTERONE ACETATE\ETHINYL ESTRADIOL
     Indication: Endometrial disorder
     Dosage: UNK
     Route: 048
     Dates: start: 20230425, end: 20230510

REACTIONS (17)
  - Cerebral infarction [Recovering/Resolving]
  - Cerebral artery occlusion [Recovering/Resolving]
  - Dizziness [Recovering/Resolving]
  - Vomiting [Recovering/Resolving]
  - Hemiplegia [Recovering/Resolving]
  - Hemihypoaesthesia [Recovering/Resolving]
  - Renal impairment [None]
  - Hyperlipidaemia [Recovered/Resolved]
  - Discomfort [Recovered/Resolved]
  - Withdrawal bleed [Recovered/Resolved]
  - Migraine [Recovered/Resolved]
  - Decreased appetite [Recovered/Resolved]
  - Hepatic function abnormal [Recovered/Resolved]
  - Contraindicated product prescribed [None]
  - Contraindicated product administered [None]
  - Labelled drug-disease interaction issue [None]
  - Off label use [None]

NARRATIVE: CASE EVENT DATE: 20230101
